FAERS Safety Report 17597586 (Version 1)
Quarter: 2020Q1

REPORT INFORMATION
  Report Type: Spontaneous
  Country: US (occurrence: US)
  Receive Date: 20200330
  Receipt Date: 20200330
  Transmission Date: 20200409
  Serious: Yes (Other)
  Sender: FDA-Public Use
  Company Number: US-SA-2020SA071656

PATIENT

DRUGS (1)
  1. TAXOTERE [Suspect]
     Active Substance: DOCETAXEL
     Dosage: UNK
     Route: 042

REACTIONS (3)
  - Alopecia [Not Recovered/Not Resolved]
  - Anxiety [Unknown]
  - Emotional distress [Unknown]
